FAERS Safety Report 6724227-9 (Version None)
Quarter: 2010Q2

REPORT INFORMATION
  Report Type: 
  Country: None (occurrence: None)
  Receive Date: 20100513
  Receipt Date: 20100507
  Transmission Date: 20101027
  Serious: Yes (Other)
  Sender: FDA-Public Use
  Company Number: GB-MERCK-1005GBR00017

PATIENT
  Age: 69 Year
  Sex: Male

DRUGS (7)
  1. JANUVIA [Suspect]
     Route: 048
  2. ELAVIL [Concomitant]
     Route: 048
  3. GLICLAZIDE [Concomitant]
     Indication: DIABETES MELLITUS
     Route: 048
  4. METFORMIN [Concomitant]
     Route: 048
  5. QUININE [Concomitant]
     Route: 065
  6. RAMIPRIL [Concomitant]
     Indication: BLOOD PRESSURE
     Route: 048
  7. ZOCOR [Concomitant]
     Route: 065

REACTIONS (2)
  - PRURITUS [None]
  - RASH [None]
